FAERS Safety Report 8624966-9 (Version None)
Quarter: 2012Q3

REPORT INFORMATION
  Report Type: 
  Country: None (occurrence: None)
  Receive Date: 20120827
  Receipt Date: 20120821
  Transmission Date: 20120928
  Serious: Yes (Other)
  Sender: FDA-Public Use
  Company Number: CA-US-EMD SERONO, INC.-7148162

PATIENT
  Sex: Female

DRUGS (1)
  1. REBIF [Suspect]
     Indication: MULTIPLE SCLEROSIS
     Route: 058
     Dates: start: 20110822, end: 20120819

REACTIONS (4)
  - WEIGHT DECREASED [None]
  - INJECTION SITE HAEMORRHAGE [None]
  - CEREBROVASCULAR INSUFFICIENCY [None]
  - INJECTION SITE PAIN [None]
